FAERS Safety Report 5490787-1 (Version None)
Quarter: 2007Q4

REPORT INFORMATION
  Report Type: 
  Country: None (occurrence: None)
  Receive Date: 20071019
  Receipt Date: 20071017
  Transmission Date: 20080405
  Serious: Yes (Death, Hospitalization)
  Sender: FDA-Public Use
  Company Number: DE-JNJFOC-20071004185

PATIENT
  Sex: Female

DRUGS (1)
  1. DOLORMIN SCHMERZTABLETTEN [Suspect]
     Indication: PAIN
     Route: 048

REACTIONS (2)
  - GASTRIC PERFORATION [None]
  - INTENTIONAL OVERDOSE [None]
